FAERS Safety Report 17495008 (Version 9)
Quarter: 2025Q4

REPORT INFORMATION
  Report Type: Report from Study
  Country: US (occurrence: US)
  Receive Date: 20200303
  Receipt Date: 20251114
  Transmission Date: 20260118
  Serious: Yes (Hospitalization, Other)
  Sender: AMNEAL
  Company Number: US-AMNEAL PHARMACEUTICALS-2019-IPXL-01108

PATIENT
  Age: 59 Year
  Sex: Male

DRUGS (7)
  1. CARBIDOPA\LEVODOPA [Suspect]
     Active Substance: CARBIDOPA\LEVODOPA
     Indication: Product used for unknown indication
     Dosage: 3 CAPSULES, 3 /DAY
     Route: 048
     Dates: end: 20211227
  2. CARBIDOPA\LEVODOPA [Suspect]
     Active Substance: CARBIDOPA\LEVODOPA
     Dosage: 3 CAPSULES, 4 /DAY
     Route: 048
     Dates: start: 20190508
  3. CARBIDOPA\LEVODOPA [Suspect]
     Active Substance: CARBIDOPA\LEVODOPA
     Dosage: 3 CAPSULES, 3 /DAY
     Route: 048
  4. CARBIDOPA\LEVODOPA [Suspect]
     Active Substance: CARBIDOPA\LEVODOPA
     Dosage: UNK
     Route: 048
     Dates: end: 20220106
  5. CARBIDOPA\LEVODOPA [Suspect]
     Active Substance: CARBIDOPA\LEVODOPA
     Dosage: 3 CAPSULES, 3 /DAY, TAKES EXTRA DOSE IF NEEDED
     Route: 048
     Dates: end: 20221210
  6. CARBIDOPA\LEVODOPA [Suspect]
     Active Substance: CARBIDOPA\LEVODOPA
     Dosage: 3 CAPSULES (61.25-245MG), 3 /DAY (61.25-245MG)
     Route: 048
  7. CARBIDOPA\LEVODOPA [Suspect]
     Active Substance: CARBIDOPA\LEVODOPA
     Dosage: 2 CAPSULES (48.75-195 MG), 3 /DAY
     Route: 048
     Dates: start: 20251110

REACTIONS (17)
  - Urinary tract infection [Unknown]
  - Adverse drug reaction [Unknown]
  - Pain [Unknown]
  - Fall [Unknown]
  - Parkinson^s disease [Not Recovered/Not Resolved]
  - Tremor [Recovering/Resolving]
  - Gait inability [Recovering/Resolving]
  - Urinary incontinence [Unknown]
  - On and off phenomenon [Not Recovered/Not Resolved]
  - Dyskinesia [Unknown]
  - Prescribed overdose [Unknown]
  - Intentional overdose [Unknown]
  - Behaviour disorder [Unknown]
  - Insomnia [Recovering/Resolving]
  - Product use issue [Unknown]
  - Product dose omission issue [Unknown]
  - Product use issue [Unknown]

NARRATIVE: CASE EVENT DATE: 20190508
